FAERS Safety Report 6413282-1 (Version None)
Quarter: 2009Q4

REPORT INFORMATION
  Report Type: 
  Country: None (occurrence: None)
  Receive Date: 20091026
  Receipt Date: 20091016
  Transmission Date: 20100525
  Serious: Yes (Other)
  Sender: FDA-Public Use
  Company Number: US-ROCHE-422468

PATIENT
  Sex: Female
  Weight: 65.9 kg

DRUGS (8)
  1. BONIVA [Suspect]
     Indication: OSTEOPENIA
     Dosage: OTHER INDICATION: OSTEOPOROSIS.
     Route: 048
     Dates: start: 20050301, end: 20090801
  2. REBIF [Suspect]
     Route: 065
  3. ZANAFLEX [Concomitant]
     Route: 048
  4. BACLOFEN [Concomitant]
     Route: 048
  5. VALIUM [Concomitant]
     Indication: DIZZINESS
     Route: 048
  6. CELEXA [Concomitant]
     Indication: DEPRESSION
     Route: 048
  7. VITAMINE D [Concomitant]
     Dosage: DRUG: VITAMIN D.
     Route: 048
  8. CALCIUM [Concomitant]

REACTIONS (5)
  - ANAEMIA [None]
  - IMPAIRED HEALING [None]
  - SCOLIOSIS [None]
  - WHITE BLOOD CELL COUNT DECREASED [None]
  - WRIST FRACTURE [None]
